FAERS Safety Report 24422456 (Version 1)
Quarter: 2024Q4

REPORT INFORMATION
  Report Type: Spontaneous
  Country: US (occurrence: None)
  Receive Date: 20241009
  Receipt Date: 20241009
  Transmission Date: 20250115
  Serious: Yes (Other)
  Sender: Public
  Company Number: None

PATIENT
  Age: 39 Year
  Sex: Male

DRUGS (4)
  1. LENALIDOMIDE [Suspect]
     Active Substance: LENALIDOMIDE
     Indication: Plasma cell myeloma
     Dosage: FREQUENCY : DAILY;?
     Route: 048
     Dates: start: 20240919, end: 20241003
  2. DARATUMUMAB [Suspect]
     Active Substance: DARATUMUMAB
  3. BORTEZOMIB [Suspect]
     Active Substance: BORTEZOMIB
  4. DEXAMETHASONE [Suspect]
     Active Substance: DEXAMETHASONE

REACTIONS (5)
  - Nonspecific reaction [None]
  - Anaemia [None]
  - Thrombocytopenia [None]
  - Gastrointestinal disorder [None]
  - Asthenia [None]

NARRATIVE: CASE EVENT DATE: 20241007
